FAERS Safety Report 9482969 (Version 2)
Quarter: 2014Q2

REPORT INFORMATION
  Report Type: Report from Study
  Country: DE (occurrence: IL)
  Receive Date: 20130828
  Receipt Date: 20140605
  Transmission Date: 20141212
  Serious: Yes (Hospitalization, Other)
  Sender: FDA-Public Use
  Company Number: DE-ACTELION-A-US2013-87802

PATIENT
  Age: 80 Year
  Sex: Male

DRUGS (3)
  1. VENTAVIS [Suspect]
     Indication: PULMONARY HYPERTENSION
     Dosage: UNK
     Route: 055
     Dates: start: 20120605
  2. COUMADIN [Suspect]
     Indication: HAEMOPTYSIS
     Dosage: 1 MG, X1
     Route: 048
  3. COUMADIN [Suspect]
     Indication: INTERNATIONAL NORMALISED RATIO INCREASED

REACTIONS (20)
  - Endarterectomy [Recovered/Resolved]
  - Pseudomonal sepsis [Unknown]
  - Staphylococcal sepsis [Unknown]
  - Enterobacter sepsis [Unknown]
  - Pseudomembranous colitis [Unknown]
  - Aspiration [Unknown]
  - Cellulitis [Unknown]
  - Haemoptysis [Unknown]
  - International normalised ratio increased [Recovered/Resolved]
  - Cardiac fibrillation [Unknown]
  - Secretion discharge [Unknown]
  - Dysphonia [Unknown]
  - Diarrhoea [Unknown]
  - Decubitus ulcer [Unknown]
  - Productive cough [Unknown]
  - Dysphagia [Unknown]
  - Sensory loss [Unknown]
  - Clostridium test positive [Unknown]
  - Fall [Unknown]
  - Mini mental status examination [Unknown]
